FAERS Safety Report 14277254 (Version 1)
Quarter: 2017Q4

REPORT INFORMATION
  Report Type: Spontaneous
  Country: US (occurrence: US)
  Receive Date: 20171212
  Receipt Date: 20171212
  Transmission Date: 20180321
  Serious: No
  Sender: FDA-Public Use
  Company Number: US-BION-005071

PATIENT
  Sex: Female

DRUGS (1)
  1. ERGOCALCIFEROL. [Suspect]
     Active Substance: ERGOCALCIFEROL

REACTIONS (2)
  - Scar [None]
  - Rash pruritic [Recovered/Resolved with Sequelae]
